FAERS Safety Report 15727478 (Version 1)
Quarter: 2018Q4

REPORT INFORMATION
  Report Type: Spontaneous
  Country: IT (occurrence: IT)
  Receive Date: 20181217
  Receipt Date: 20181217
  Transmission Date: 20190205
  Serious: Yes (Hospitalization)
  Sender: FDA-Public Use
  Company Number: IT-ROCHE-2230340

PATIENT
  Age: 39 Year
  Sex: Male

DRUGS (13)
  1. SIMVASTATIN. [Concomitant]
     Active Substance: SIMVASTATIN
     Route: 065
  2. LANTUS [Concomitant]
     Active Substance: INSULIN GLARGINE
     Route: 065
  3. ESAPENT [Concomitant]
     Route: 065
  4. MIRTAZAPINE. [Concomitant]
     Active Substance: MIRTAZAPINE
     Route: 065
  5. PLAVIX [Concomitant]
     Active Substance: CLOPIDOGREL BISULFATE
     Route: 065
  6. NOZINAN [Concomitant]
     Active Substance: LEVOMEPROMAZINE
     Route: 065
  7. LORTAAN [Concomitant]
     Active Substance: LOSARTAN POTASSIUM
     Route: 065
  8. NORVASC [Concomitant]
     Active Substance: AMLODIPINE BESYLATE
     Route: 065
  9. RIVOTRIL [Suspect]
     Active Substance: CLONAZEPAM
     Indication: PRODUCT USED FOR UNKNOWN INDICATION
     Route: 065
  10. SPIRIVA [Concomitant]
     Active Substance: TIOTROPIUM BROMIDE MONOHYDRATE
     Route: 065
  11. VICTOZA [Concomitant]
     Active Substance: LIRAGLUTIDE
     Dosage: 6 MG/ML
     Route: 065
  12. METFORMIN [Concomitant]
     Active Substance: METFORMIN HYDROCHLORIDE
     Route: 065
  13. HUMALOG [Concomitant]
     Active Substance: INSULIN LISPRO
     Dosage: 100 U/ML
     Route: 065

REACTIONS (6)
  - Anhedonia [Unknown]
  - Drug abuse [Unknown]
  - Dysphoria [Unknown]
  - Suicidal ideation [Unknown]
  - Memory impairment [Unknown]
  - Mood altered [Unknown]

NARRATIVE: CASE EVENT DATE: 20180113
